FAERS Safety Report 8119002-7 (Version None)
Quarter: 2012Q1

REPORT INFORMATION
  Report Type: 
  Country: None (occurrence: None)
  Receive Date: 20120207
  Receipt Date: 20120129
  Transmission Date: 20120608
  Serious: Yes (Other)
  Sender: FDA-Public Use
  Company Number: US-ROCHE-1036779

PATIENT
  Sex: Male

DRUGS (3)
  1. PEGINTERFERON ALFA-2A [Suspect]
     Indication: HEPATITIS C
     Route: 058
     Dates: start: 20111204
  2. TELAPREVIR [Suspect]
     Indication: HEPATITIS C
     Dates: start: 20111204
  3. RIBAVIRIN [Suspect]
     Indication: HEPATITIS C
     Dosage: IN DIVIDED DOSES
     Route: 048
     Dates: start: 20111204

REACTIONS (2)
  - BLOOD URINE PRESENT [None]
  - PLATELET COUNT DECREASED [None]
